FAERS Safety Report 23670549 (Version 1)
Quarter: 2024Q1

REPORT INFORMATION
  Report Type: Report from Study
  Country: US (occurrence: US)
  Receive Date: 20240326
  Receipt Date: 20240326
  Transmission Date: 20240409
  Serious: Yes (Other)
  Sender: FDA-Public Use
  Company Number: US-TAKEDA-2023TUS005704

PATIENT
  Sex: Female
  Weight: 81.17 kg

DRUGS (17)
  1. HUMAN IMMUNOGLOBULIN G [Suspect]
     Active Substance: HUMAN IMMUNOGLOBULIN G
     Indication: Dermatomyositis
     Dosage: 60 MILLIGRAM
     Route: 042
     Dates: start: 20230118
  2. TACROLIMUS [Concomitant]
     Active Substance: TACROLIMUS
  3. EPINEPHRINE [Concomitant]
     Active Substance: EPINEPHRINE
  4. NITROFURANTOIN [Concomitant]
     Active Substance: NITROFURANTOIN
  5. BETAMETHASONE DIPROPIONATE [Concomitant]
     Active Substance: BETAMETHASONE DIPROPIONATE
  6. TRESIBA [Concomitant]
     Active Substance: INSULIN DEGLUDEC
  7. METHOTREXATE [Concomitant]
     Active Substance: METHOTREXATE
  8. VALACYCLOVIR [Concomitant]
     Active Substance: VALACYCLOVIR HYDROCHLORIDE
  9. PANTOPRAZOLE [Concomitant]
     Active Substance: PANTOPRAZOLE
  10. BETAMETHASONE [Concomitant]
     Active Substance: BETAMETHASONE\BETAMETHASONE DIPROPIONATE
  11. LEVOTHYROXINE [Concomitant]
     Active Substance: LEVOTHYROXINE\LEVOTHYROXINE SODIUM
  12. LISINOPRIL [Concomitant]
     Active Substance: LISINOPRIL
  13. VITAMIN D3 [Concomitant]
     Active Substance: CHOLECALCIFEROL
  14. VITAMIN C [Concomitant]
     Active Substance: ASCORBIC ACID
  15. FOLIC ACID [Concomitant]
     Active Substance: FOLIC ACID
  16. MINERALS\VITAMINS [Concomitant]
     Active Substance: MINERALS\VITAMINS
  17. KETOCONAZOLE [Concomitant]
     Active Substance: KETOCONAZOLE

REACTIONS (3)
  - Pneumonia [Unknown]
  - Fatigue [Unknown]
  - Off label use [Unknown]
